FAERS Safety Report 8469763-2 (Version None)
Quarter: 2012Q2

REPORT INFORMATION
  Report Type: 
  Country: None (occurrence: None)
  Receive Date: 20120626
  Receipt Date: 20120620
  Transmission Date: 20120825
  Serious: Yes (Life-Threatening)
  Sender: FDA-Public Use
  Company Number: IT-TEVA-344629ISR

PATIENT
  Sex: Male
  Weight: 70 kg

DRUGS (5)
  1. ARSENIC TRIOXIDE [Suspect]
     Dosage: 10 MILLIGRAM;
     Dates: start: 20120612, end: 20120616
  2. ATRACURIUM BESYLATE [Suspect]
     Dosage: 80 MILLIGRAM;
     Dates: start: 20120610, end: 20120617
  3. METHYLPREDNISOLONE [Concomitant]
     Indication: RETINOIC ACID SYNDROME
     Route: 042
     Dates: start: 20120616, end: 20120618
  4. HYDROXYUREA [Suspect]
     Dosage: 4 MILLIGRAM;
     Dates: start: 20120612, end: 20120619
  5. DEXAMETHASONE [Concomitant]
     Indication: PROPHYLAXIS
     Route: 042
     Dates: start: 20120610, end: 20120616

REACTIONS (1)
  - CEREBRAL HAEMORRHAGE [None]
